FAERS Safety Report 17300353 (Version 2)
Quarter: 2020Q1

REPORT INFORMATION
  Report Type: Spontaneous
  Country: US (occurrence: US)
  Receive Date: 20200122
  Receipt Date: 20200122
  Transmission Date: 20200409
  Serious: No
  Sender: FDA-Public Use
  Company Number: US-ALLERGAN-1900195US

PATIENT
  Sex: Female

DRUGS (4)
  1. RESTASIS [Suspect]
     Active Substance: CYCLOSPORINE
     Indication: SUPERIOR LIMBIC KERATOCONJUNCTIVITIS
     Dosage: UNK
     Route: 047
  2. RESTASIS [Suspect]
     Active Substance: CYCLOSPORINE
     Indication: SUPERIOR LIMBIC KERATOCONJUNCTIVITIS
     Dosage: UNK
     Route: 047
     Dates: start: 201811
  3. TRAVATAN [Concomitant]
     Active Substance: TRAVOPROST
     Indication: GLAUCOMA
     Dosage: UNK, QHS
     Route: 047
  4. ALPHAGAN P [Concomitant]
     Active Substance: BRIMONIDINE TARTRATE
     Indication: GLAUCOMA
     Dosage: UNK, BID
     Route: 047

REACTIONS (3)
  - Hordeolum [Recovering/Resolving]
  - Product container issue [Unknown]
  - Off label use [Unknown]
